FAERS Safety Report 8096358-5 (Version None)
Quarter: 2012Q1

REPORT INFORMATION
  Report Type: 
  Country: None (occurrence: None)
  Receive Date: 20120131
  Receipt Date: 20120124
  Transmission Date: 20120608
  Serious: Yes (Other)
  Sender: FDA-Public Use
  Company Number: PHHY2012IN006236

PATIENT
  Age: 45 Year
  Sex: Male

DRUGS (7)
  1. ZOLPIDEM [Suspect]
     Dosage: 15 MG, UNK
  2. ZOLPIDEM [Suspect]
     Dosage: 20 MG, UNK
  3. LORAZEPAM [Concomitant]
     Indication: SLEEP DISORDER
     Dosage: UNK UKN, UNK
  4. PROPRANOLOL [Concomitant]
     Indication: SLEEP DISORDER
     Dosage: UNK UKN, UNK
  5. ZOLPIDEM [Suspect]
     Indication: SLEEP DISORDER
     Dosage: 10 MG, UNK
  6. ESCITALOPRAM [Concomitant]
     Indication: SLEEP DISORDER
     Dosage: UNK UKN, UNK
  7. MIRTAZAPINE [Concomitant]
     Indication: SLEEP DISORDER
     Dosage: UNK UKN, UNK

REACTIONS (7)
  - DISORIENTATION [None]
  - INCORRECT DOSE ADMINISTERED [None]
  - AGITATION [None]
  - DELIRIUM [None]
  - FEELING ABNORMAL [None]
  - BLOOD PRESSURE INCREASED [None]
  - WITHDRAWAL SYNDROME [None]
